FAERS Safety Report 11151075 (Version 1)
Quarter: 2015Q2

REPORT INFORMATION
  Report Type: Spontaneous
  Country: None (occurrence: None)
  Receive Date: 20150529
  Receipt Date: 20150529
  Transmission Date: 20150821
  Serious: No
  Sender: FDA-Public Use
  Company Number: None

PATIENT
  Age: 23 Year
  Sex: Female
  Weight: 56.7 kg

DRUGS (9)
  1. FLUOXETINE [Concomitant]
     Active Substance: FLUOXETINE\FLUOXETINE HYDROCHLORIDE
  2. PROBIOTIC [Concomitant]
     Active Substance: PROBIOTICS NOS
  3. HYDROXYZINE [Concomitant]
     Active Substance: HYDROXYZINE\HYDROXYZINE HYDROCHLORIDE
  4. BIRTH CONTROL [Concomitant]
     Active Substance: UNSPECIFIED INGREDIENT
  5. PEPCID [Concomitant]
     Active Substance: FAMOTIDINE
  6. AZATHIOPRINE 50 MG [Suspect]
     Active Substance: AZATHIOPRINE
     Indication: COLITIS ULCERATIVE
     Dosage: 3 PILLS
     Route: 048
     Dates: start: 20140501, end: 20150528
  7. MULTI VITAMIN [Concomitant]
     Active Substance: VITAMINS
  8. SULFASALAZINE. [Concomitant]
     Active Substance: SULFASALAZINE
  9. FOLIC ACID. [Concomitant]
     Active Substance: FOLIC ACID

REACTIONS (1)
  - Hair texture abnormal [None]
